FAERS Safety Report 4718718-X (Version None)
Quarter: 2005Q3

REPORT INFORMATION
  Report Type: 
  Country: None (occurrence: None)
  Receive Date: 20050719
  Receipt Date: 20050706
  Transmission Date: 20060218
  Serious: Yes (Hospitalization, Other)
  Sender: FDA-Public Use
  Company Number: 2005098200

PATIENT
  Age: 84 Year
  Sex: Female
  Weight: 57.1532 kg

DRUGS (3)
  1. DETROL LA [Suspect]
     Indication: POLLAKIURIA
     Dosage: 4 MG (4 MG, 1 IN 1 D), ORAL
     Route: 048
     Dates: start: 20040301
  2. ADVAIR (FLUTICASONE PROPIONATE, SALMETEROL XINAFOATE) [Concomitant]
  3. SPIRIVA [Concomitant]

REACTIONS (7)
  - DRY SKIN [None]
  - HAEMATEMESIS [None]
  - HIP ARTHROPLASTY [None]
  - INFECTION [None]
  - KNEE ARTHROPLASTY [None]
  - PNEUMONIA [None]
  - SKIN EXFOLIATION [None]
